FAERS Safety Report 16198981 (Version 4)
Quarter: 2020Q4

REPORT INFORMATION
  Report Type: Report from Study
  Country: TW (occurrence: TW)
  Receive Date: 20190415
  Receipt Date: 20201222
  Transmission Date: 20210113
  Serious: Yes (Death, Other)
  Sender: FDA-Public Use
  Company Number: TW-JNJFOC-20190414026

PATIENT
  Age: 74 Year
  Sex: Female
  Weight: 49 kg

DRUGS (10)
  1. BOKEY [Concomitant]
     Route: 048
  2. ESOMEPRAZOLE. [Concomitant]
     Active Substance: ESOMEPRAZOLE MAGNESIUM
     Dosage: BEFORE MEAL
     Route: 048
  3. PLAVIX [Concomitant]
     Active Substance: CLOPIDOGREL BISULFATE
     Dosage: BEFORE MEAL
     Route: 048
  4. STELARA [Suspect]
     Active Substance: USTEKINUMAB
     Indication: PSORIATIC ARTHROPATHY
     Dosage: APPROXIMATE TOTAL NUMBERS OF INJECTIONS PATIENT RECEIVED-10
     Route: 058
     Dates: start: 20161102, end: 20181116
  5. DIOVAN [Concomitant]
     Active Substance: VALSARTAN
     Dosage: BEFORE MEAL
     Route: 048
  6. CRESTOR [Concomitant]
     Active Substance: ROSUVASTATIN CALCIUM
     Dosage: BEFORE MEAL
     Route: 048
  7. ESOMEPRAZOLE. [Concomitant]
     Active Substance: ESOMEPRAZOLE MAGNESIUM
     Dosage: BEFORE MEAL
     Route: 048
  8. BISOPROLOL [Concomitant]
     Active Substance: BISOPROLOL
     Dosage: BEFORE MEAL
     Route: 048
  9. STELARA [Suspect]
     Active Substance: USTEKINUMAB
     Indication: PSORIASIS
  10. BOKEY [Concomitant]
     Route: 048

REACTIONS (9)
  - Multiple organ dysfunction syndrome [Fatal]
  - Acute myocardial infarction [Unknown]
  - Compression fracture [Unknown]
  - Osteonecrosis [Unknown]
  - Urinary tract infection pseudomonal [Unknown]
  - Infective spondylitis [Unknown]
  - Coronary artery disease [Unknown]
  - Candida infection [Unknown]
  - Clostridium difficile colitis [Unknown]

NARRATIVE: CASE EVENT DATE: 20181025
